FAERS Safety Report 6203719-5 (Version None)
Quarter: 2009Q2

REPORT INFORMATION
  Report Type: 
  Country: None (occurrence: None)
  Receive Date: 20090526
  Receipt Date: 20090526
  Transmission Date: 20091009
  Serious: Yes (Hospitalization)
  Sender: FDA-Public Use
  Company Number: None

PATIENT
  Age: 43 Year
  Sex: Female
  Weight: 76.2043 kg

DRUGS (2)
  1. HYDROXYCHLOROQUINE SULFATE [Suspect]
     Indication: PANNICULITIS
     Dosage: 1 TABLET TWICE DAILY PO LESS THAN 1 MONTH
     Route: 048
     Dates: start: 20090423, end: 20090518
  2. HYDROXYCHLOROQUINE SULFATE [Suspect]
     Indication: SYSTEMIC LUPUS ERYTHEMATOSUS
     Dosage: 1 TABLET TWICE DAILY PO LESS THAN 1 MONTH
     Route: 048
     Dates: start: 20090423, end: 20090518

REACTIONS (14)
  - ASTHENIA [None]
  - DRUG INEFFECTIVE [None]
  - DYSPEPSIA [None]
  - DYSPHAGIA [None]
  - EATING DISORDER [None]
  - FEELING HOT [None]
  - HEAT RASH [None]
  - HYPOTENSION [None]
  - LETHARGY [None]
  - PRURITUS [None]
  - PYREXIA [None]
  - RASH [None]
  - SKIN BURNING SENSATION [None]
  - URTICARIA [None]
